FAERS Safety Report 11335439 (Version 1)
Quarter: 2015Q3

REPORT INFORMATION
  Report Type: Spontaneous
  Country: IT (occurrence: IT)
  Receive Date: 20150804
  Receipt Date: 20150804
  Transmission Date: 20151125
  Serious: Yes (Hospitalization)
  Sender: FDA-Public Use
  Company Number: IT-ABBVIE-15P-083-1438788-00

PATIENT
  Age: 55 Year
  Sex: Male
  Weight: 85 kg

DRUGS (5)
  1. DOBETIN [Suspect]
     Active Substance: CYANOCOBALAMIN
     Indication: AXONAL NEUROPATHY
     Route: 050
     Dates: start: 20110501
  2. DUODOPA [Suspect]
     Active Substance: CARBIDOPA\LEVODOPA
     Indication: PARKINSON^S DISEASE
     Route: 050
     Dates: start: 20110101, end: 20150702
  3. CLOZAPINA [Suspect]
     Active Substance: CLOZAPINE
     Indication: SLEEP DISORDER
     Route: 048
     Dates: start: 20120301, end: 20150601
  4. FOLINA [Suspect]
     Active Substance: FOLIC ACID
     Indication: AXONAL NEUROPATHY
     Route: 048
     Dates: start: 20110501
  5. NEUPRO [Suspect]
     Active Substance: ROTIGOTINE
     Indication: PARKINSON^S DISEASE
     Route: 061
     Dates: start: 20110101, end: 20150701

REACTIONS (3)
  - Axonal neuropathy [Not Recovered/Not Resolved]
  - Anaemia [Not Recovered/Not Resolved]
  - Acute kidney injury [Not Recovered/Not Resolved]

NARRATIVE: CASE EVENT DATE: 20150601
